FAERS Safety Report 10441750 (Version 2)
Quarter: 2014Q4

REPORT INFORMATION
  Report Type: Spontaneous
  Country: SE (occurrence: SE)
  Receive Date: 20140908
  Receipt Date: 20141229
  Transmission Date: 20150528
  Serious: Yes (Other)
  Sender: FDA-Public Use
  Company Number: SE-PFIZER INC-2014246902

PATIENT
  Age: 30 Year
  Sex: Male

DRUGS (6)
  1. DOLCONTIN [Suspect]
     Active Substance: MORPHINE
     Route: 048
     Dates: start: 20130606, end: 20130606
  2. DEXOFEN (DEXTROPROPOXYPHENE NAPSILATE) [Suspect]
     Active Substance: PROPOXYPHENE NAPSYLATE
     Route: 048
     Dates: start: 20130606, end: 20130606
  3. XANOR [Suspect]
     Active Substance: ALPRAZOLAM
     Dosage: 5-10 TABLETS OF UNKNOWN STRENGTH
     Route: 048
     Dates: start: 20130606, end: 20130606
  4. DIAZEPAM. [Suspect]
     Active Substance: DIAZEPAM
     Route: 048
     Dates: start: 20130606, end: 20130606
  5. IKTORIVIL [Suspect]
     Active Substance: CLONAZEPAM
     Dosage: 1-2 TABLETS OF UNKNOWN STRENGTH
     Route: 048
     Dates: start: 20130606, end: 20130606
  6. CATAPRESAN [Concomitant]
     Active Substance: CLONIDINE

REACTIONS (3)
  - Drug tolerance [None]
  - Intentional product misuse [Recovered/Resolved]
  - Toxicity to various agents [Recovered/Resolved]

NARRATIVE: CASE EVENT DATE: 20130606
